FAERS Safety Report 9807302 (Version 2)
Quarter: 2014Q1

REPORT INFORMATION
  Report Type: Report from Study
  Country: AU (occurrence: AU)
  Receive Date: 20140110
  Receipt Date: 20140120
  Transmission Date: 20141002
  Serious: Yes (Hospitalization)
  Sender: FDA-Public Use
  Company Number: AU-ROCHE-1327261

PATIENT
  Age: 42 Year
  Sex: Female
  Weight: 66 kg

DRUGS (4)
  1. TRASTUZUMAB [Suspect]
     Indication: BREAST CANCER
     Dosage: LAST DOSE PRIOR TO SAE ON 06/DEC/2013
     Route: 058
     Dates: start: 20131206, end: 20131221
  2. TRASTUZUMAB [Suspect]
     Route: 058
     Dates: start: 20140102
  3. PERTUZUMAB [Suspect]
     Indication: BREAST CANCER
     Dosage: LAST DOSE PRIOR TO SAE ON 06/DEC/2013
     Route: 042
     Dates: start: 20131206, end: 20131221
  4. PERTUZUMAB [Suspect]
     Route: 042
     Dates: start: 20140102

REACTIONS (1)
  - Lower respiratory tract infection [Recovered/Resolved]
